FAERS Safety Report 7955042 (Version 3)
Quarter: 2012Q4

REPORT INFORMATION
  Report Type: 
  Country: GB (occurrence: GB)
  Receive Date: 20110523
  Receipt Date: 20120904
  Transmission Date: 20130627
  Serious: Yes (Other)
  Sender: FDA-Public Use
  Company Number: GB-AMGEN-GBRSP2011025648

PATIENT
  Age: 49 Year
  Sex: Female
  Weight: 73 kg

DRUGS (5)
  1. ENBREL [Suspect]
     Indication: ANKYLOSING SPONDYLITIS
     Dosage: 50 mg, weekly
     Dates: start: 201009
  2. DIPROSALIC [Concomitant]
     Dosage: UNK
  3. CELEBREX [Concomitant]
     Dosage: 200 mg, 2x/day
  4. DOVONEX [Concomitant]
     Dosage: 0.005 %, 2x/day
  5. GABAPENTIN [Concomitant]
     Dosage: 300 mg, 3x/day

REACTIONS (6)
  - Gait disturbance [Not Recovered/Not Resolved]
  - Ankylosing spondylitis [Not Recovered/Not Resolved]
  - Depression [Not Recovered/Not Resolved]
  - Pain [Not Recovered/Not Resolved]
  - Pustular psoriasis [Not Recovered/Not Resolved]
  - Upper respiratory tract infection [Unknown]
